FAERS Safety Report 11096810 (Version 1)
Quarter: 2015Q2

REPORT INFORMATION
  Report Type: Spontaneous
  Country: GB (occurrence: GB)
  Receive Date: 20150507
  Receipt Date: 20150507
  Transmission Date: 20150821
  Serious: Yes (Hospitalization)
  Sender: FDA-Public Use
  Company Number: GB-TEVA-560296ACC

PATIENT
  Age: 78 Year
  Sex: Female
  Weight: 75 kg

DRUGS (10)
  1. MIRTAZAPINE. [Suspect]
     Active Substance: MIRTAZAPINE
     Indication: DEPRESSION
     Route: 048
     Dates: start: 20150401, end: 20150421
  2. ASPIRIN COATED [Concomitant]
  3. LANSOPRAZOLE. [Concomitant]
     Active Substance: LANSOPRAZOLE
  4. SERTRALINE [Concomitant]
     Active Substance: SERTRALINE HYDROCHLORIDE
  5. OLANZAPINE. [Concomitant]
     Active Substance: OLANZAPINE
  6. BISOPROLOL [Concomitant]
     Active Substance: BISOPROLOL
  7. ATORVASTATIN [Concomitant]
     Active Substance: ATORVASTATIN
  8. AMIODARONE [Concomitant]
     Active Substance: AMIODARONE
  9. CLOPIDOGREL [Concomitant]
     Active Substance: CLOPIDOGREL BISULFATE
  10. SPIRONOLACTONE. [Concomitant]
     Active Substance: SPIRONOLACTONE

REACTIONS (3)
  - Nosocomial infection [Unknown]
  - Neutropenia [Not Recovered/Not Resolved]
  - Oxygen saturation decreased [Not Recovered/Not Resolved]

NARRATIVE: CASE EVENT DATE: 20150419
